FAERS Safety Report 5097514-0 (Version None)
Quarter: 2006Q3

REPORT INFORMATION
  Report Type: 
  Country: None (occurrence: None)
  Receive Date: 20060901
  Receipt Date: 20060815
  Transmission Date: 20061208
  Serious: No
  Sender: FDA-Public Use
  Company Number: CO200608003432

PATIENT
  Age: 17 Year
  Sex: Female

DRUGS (4)
  1. CYMBALTA [Suspect]
     Indication: MAJOR DEPRESSION
     Dosage: 60  MG, DAILY (1/D), ORAL
     Route: 048
  2. OMEPRAZOLE [Concomitant]
  3. MYLANTA (ALUMINIUM HYDROXIDE GEL, DRIED, MAGNESIUM HYDROXIDE, SIMETICO [Concomitant]
  4. ZOPICLONE (ZOPICLONE) [Concomitant]

REACTIONS (7)
  - ANAEMIA [None]
  - BRAIN OEDEMA [None]
  - DUODENAL ULCER HAEMORRHAGE [None]
  - HEADACHE [None]
  - INFLUENZA [None]
  - INSOMNIA [None]
  - SYNCOPE [None]
